FAERS Safety Report 12450682 (Version 1)
Quarter: 2016Q2

REPORT INFORMATION
  Report Type: Spontaneous
  Country: CA (occurrence: None)
  Receive Date: 20160608
  Receipt Date: 20160608
  Transmission Date: 20160815
  Serious: Yes (Hospitalization)
  Sender: FDA-Public Use
  Company Number: None

PATIENT
  Age: 22 Year
  Sex: Male
  Weight: 104.33 kg

DRUGS (2)
  1. RISPERIDAL [Suspect]
     Active Substance: RISPERIDONE
  2. SUSTENNA [Concomitant]

REACTIONS (2)
  - Depression [None]
  - Weight increased [None]

NARRATIVE: CASE EVENT DATE: 20100901
